FAERS Safety Report 5104779-5 (Version None)
Quarter: 2006Q3

REPORT INFORMATION
  Report Type: 
  Country: None (occurrence: None)
  Receive Date: 20060911
  Receipt Date: 20060830
  Transmission Date: 20061208
  Serious: Yes (Other)
  Sender: FDA-Public Use
  Company Number: 2006AL001971

PATIENT
  Age: 72 Year
  Sex: Female

DRUGS (2)
  1. PROMETH W/CODEINE COUGH SYRUP (PROMETHAZINE [Suspect]
  2. INHALER [Concomitant]

REACTIONS (1)
  - MALAISE [None]
